FAERS Safety Report 8924643 (Version 1)
Quarter: 2012Q4

REPORT INFORMATION
  Report Type: 
  Country: US (occurrence: US)
  Receive Date: 20121126
  Receipt Date: 20121126
  Transmission Date: 20130627
  Serious: No
  Sender: FDA-Public Use
  Company Number: US-BRISTOL-MYERS SQUIBB COMPANY-16981722

PATIENT
  Age: 54 Year
  Sex: Female

DRUGS (1)
  1. KOMBIGLYZE XR [Suspect]
     Indication: DIABETES MELLITUS
     Dosage: 1 DF: 2.5mg/1000 mg one tab daily
     Route: 048
     Dates: start: 20120512, end: 20120910

REACTIONS (3)
  - Headache [Unknown]
  - Weight increased [Unknown]
  - Blood glucose increased [Unknown]
